FAERS Safety Report 8988066 (Version 2)
Quarter: 2013Q1

REPORT INFORMATION
  Report Type: Spontaneous
  Country: JP (occurrence: JP)
  Receive Date: 20121227
  Receipt Date: 20130124
  Transmission Date: 20140127
  Serious: Yes (Other)
  Sender: FDA-Public Use
  Company Number: JP-JNJFOC-20121211268

PATIENT
  Sex: Male

DRUGS (3)
  1. DUROTEP MT [Suspect]
     Indication: CANCER PAIN
     Route: 062
  2. OXINORM [Suspect]
     Indication: CANCER PAIN
     Route: 048
  3. OXINORM [Suspect]
     Indication: CANCER PAIN
     Route: 048

REACTIONS (2)
  - Delirium [Recovered/Resolved]
  - Treatment noncompliance [Unknown]
